FAERS Safety Report 9054692 (Version 1)
Quarter: 2013Q1

REPORT INFORMATION
  Report Type: Spontaneous
  Country: US (occurrence: US)
  Receive Date: 20130208
  Receipt Date: 20130208
  Transmission Date: 20140127
  Serious: Yes (Other)
  Sender: FDA-Public Use
  Company Number: US-BAYER-2013-015679

PATIENT
  Age: 41 Year
  Sex: Female
  Weight: 61.22 kg

DRUGS (4)
  1. OCELLA [Suspect]
  2. ZYRTEC [CETIRIZINE HYDROCHLORIDE] [Concomitant]
  3. CLARITIN [Concomitant]
  4. IBUPROFEN [IBUPROFEN] [Concomitant]
     Dosage: AS NEEDED

REACTIONS (1)
  - Deep vein thrombosis [None]
